FAERS Safety Report 23721531 (Version 1)
Quarter: 2024Q2

REPORT INFORMATION
  Report Type: Spontaneous
  Country: JP (occurrence: JP)
  Receive Date: 20240409
  Receipt Date: 20240409
  Transmission Date: 20240716
  Serious: Yes (Death, Hospitalization, Other)
  Sender: FDA-Public Use
  Company Number: JP-SUN PHARMACEUTICAL INDUSTRIES LTD-2024R1-439838

PATIENT
  Sex: Female

DRUGS (4)
  1. ALENDRONATE SODIUM [Suspect]
     Active Substance: ALENDRONATE SODIUM
     Indication: Demyelinating polyneuropathy
     Dosage: UNK
     Route: 065
  2. LANSOPRAZOLE [Suspect]
     Active Substance: LANSOPRAZOLE
     Indication: Demyelinating polyneuropathy
     Dosage: UNK
     Route: 065
  3. PREDNISOLONE [Suspect]
     Active Substance: PREDNISOLONE
     Indication: Demyelinating polyneuropathy
     Dosage: 25 MILLIGRAM, DAILY
     Route: 065
  4. AZATHIOPRINE [Suspect]
     Active Substance: AZATHIOPRINE
     Indication: Demyelinating polyneuropathy
     Dosage: 50 MILLIGRAM, DAILY
     Route: 048

REACTIONS (6)
  - Organ failure [Fatal]
  - Abortion induced [Unknown]
  - Epstein-Barr virus infection reactivation [Unknown]
  - Exposure during pregnancy [Unknown]
  - Hepatitis acute [Unknown]
  - Hepatic encephalopathy [Unknown]
